FAERS Safety Report 5205996-6 (Version None)
Quarter: 2006Q4

REPORT INFORMATION
  Report Type: 
  Country: None (occurrence: None)
  Receive Date: 20061027
  Receipt Date: 20060712
  Transmission Date: 20070319
  Serious: No
  Sender: FDA-Public Use
  Company Number: 200615983US

PATIENT

DRUGS (1)
  1. KETEK [Suspect]
     Dates: start: 20060710

REACTIONS (2)
  - ABDOMINAL PAIN [None]
  - NAUSEA [None]
